FAERS Safety Report 4738102-2 (Version None)
Quarter: 2005Q3

REPORT INFORMATION
  Report Type: 
  Country: None (occurrence: None)
  Receive Date: 20050805
  Receipt Date: 20050711
  Transmission Date: 20060218
  Serious: Yes (Death)
  Sender: FDA-Public Use
  Company Number: WAES 0508USA00019

PATIENT
  Sex: 0

DRUGS (1)
  1. PEPCID [Suspect]
     Indication: PEPTIC ULCER HAEMORRHAGE
     Dosage: 40 MG/ DAILY

REACTIONS (2)
  - CARDIAC FAILURE [None]
  - HELICOBACTER INFECTION [None]
